FAERS Safety Report 24754309 (Version 1)
Quarter: 2024Q4

REPORT INFORMATION
  Report Type: Spontaneous
  Country: US (occurrence: US)
  Receive Date: 20241219
  Receipt Date: 20241219
  Transmission Date: 20250114
  Serious: Yes (Other)
  Sender: BAYER HEALTHCARE LLC
  Company Number: US-BAYER-2024A173955

PATIENT
  Age: 58 Year
  Sex: Female

DRUGS (2)
  1. BAYER ASPIRIN REGIMEN CHEWABLE LOW DOSE ASPIRIN ORANGE [Suspect]
     Active Substance: ASPIRIN
     Dosage: 81.5 MILLIGRAMS PER SIDE TOE ( VOMIT)
     Dates: start: 20200512, end: 20230719
  2. TYLENOL [Concomitant]
     Active Substance: ACETAMINOPHEN
     Indication: Jaw fracture

REACTIONS (4)
  - Nausea [Recovering/Resolving]
  - Ear pain [Recovering/Resolving]
  - Blood glucose increased [Recovering/Resolving]
  - Eye pain [Recovering/Resolving]
